FAERS Safety Report 5769320-2 (Version None)
Quarter: 2008Q2

REPORT INFORMATION
  Report Type: 
  Country: None (occurrence: None)
  Receive Date: 20080610
  Receipt Date: 20080527
  Transmission Date: 20081010
  Serious: Yes (Other)
  Sender: FDA-Public Use
  Company Number: 2008014122

PATIENT
  Sex: Male

DRUGS (1)
  1. VISINE TEARS (GLYCERIN, POLYETHYLENE GLYCOL, HYDROXYPROPYLMETHYLCELLUL [Suspect]
     Indication: DRY EYE
     Dosage: OPHTHALMIC
     Route: 047
     Dates: start: 20080520, end: 20080521

REACTIONS (3)
  - EYE IRRITATION [None]
  - INSTILLATION SITE IRRITATION [None]
  - VISION BLURRED [None]
